FAERS Safety Report 4914394-1 (Version None)
Quarter: 2006Q1

REPORT INFORMATION
  Report Type: 
  Country: None (occurrence: None)
  Receive Date: 20060113
  Receipt Date: 20050926
  Transmission Date: 20060701
  Serious: No
  Sender: FDA-Public Use
  Company Number: 2005SP001772

PATIENT
  Age: 68 Year
  Sex: Female
  Weight: 58.0604 kg

DRUGS (2)
  1. LUNESTA [Suspect]
     Indication: INSOMNIA
     Dosage: 3 MG;HS;ORAL
     Route: 048
     Dates: start: 20050628, end: 20050701
  2. ACTONEL [Concomitant]

REACTIONS (2)
  - DIZZINESS [None]
  - HEADACHE [None]
